FAERS Safety Report 15527764 (Version 2)
Quarter: 2018Q4

REPORT INFORMATION
  Report Type: Spontaneous
  Country: DE (occurrence: DE)
  Receive Date: 20181018
  Receipt Date: 20181018
  Transmission Date: 20190205
  Serious: Yes (Other)
  Sender: FDA-Public Use
  Company Number: PHHY2018DE126158

PATIENT
  Age: 78 Year
  Sex: Female

DRUGS (1)
  1. DICLO 1A PHARMA [Suspect]
     Active Substance: DICLOFENAC SODIUM
     Indication: ARTHRALGIA
     Dosage: 50 MG, BID (1-0-1
     Route: 048
     Dates: start: 201809

REACTIONS (3)
  - Blood pressure decreased [Unknown]
  - Bradycardia [Recovering/Resolving]
  - Hyperacusis [Unknown]
